FAERS Safety Report 4528811-2 (Version None)
Quarter: 2004Q4

REPORT INFORMATION
  Report Type: 
  Country: None (occurrence: None)
  Receive Date: 20041216
  Receipt Date: 20041116
  Transmission Date: 20050328
  Serious: Yes (Other)
  Sender: FDA-Public Use
  Company Number: CA-GLAXOSMITHKLINE-A0534350A

PATIENT
  Age: 63 Year
  Sex: Female
  Weight: 87.3 kg

DRUGS (4)
  1. AVANDIA [Suspect]
     Indication: DIABETES MELLITUS
     Dosage: 4MG PER DAY
     Route: 048
     Dates: start: 20040925
  2. ZOCOR [Concomitant]
     Indication: HYPERLIPIDAEMIA
     Dosage: 20MG PER DAY
     Route: 048
     Dates: start: 20040201
  3. ALTACE [Concomitant]
     Indication: HYPERTENSION
     Dosage: 5MG PER DAY
     Route: 048
     Dates: start: 19990101
  4. METFORMIN HCL [Concomitant]
     Indication: DIABETES MELLITUS
     Dosage: 500MG THREE TIMES PER DAY
     Route: 048
     Dates: start: 20010101

REACTIONS (3)
  - CHROMATURIA [None]
  - HAEMATURIA [None]
  - VAGINAL HAEMORRHAGE [None]
